FAERS Safety Report 8021752-8 (Version None)
Quarter: 2012Q1

REPORT INFORMATION
  Report Type: 
  Country: None (occurrence: None)
  Receive Date: 20120104
  Receipt Date: 20111221
  Transmission Date: 20120608
  Serious: Yes (Other)
  Sender: FDA-Public Use
  Company Number: US-SANOFI-AVENTIS-2011SA078701

PATIENT
  Age: 75 Year
  Sex: Female

DRUGS (2)
  1. MULTAQ [Suspect]
     Indication: ATRIAL FIBRILLATION
     Route: 048
     Dates: start: 20090101
  2. GLUCOPHAGE [Concomitant]

REACTIONS (3)
  - PRODUCT QUALITY ISSUE [None]
  - ATRIAL FIBRILLATION [None]
  - MEDICATION RESIDUE [None]
